FAERS Safety Report 9849234 (Version 1)
Quarter: 2014Q1

REPORT INFORMATION
  Report Type: Spontaneous
  Country: US (occurrence: None)
  Receive Date: 20140127
  Receipt Date: 20140127
  Transmission Date: 20141002
  Serious: Yes (Life-Threatening, Hospitalization)
  Sender: FDA-Public Use
  Company Number: None

PATIENT
  Age: 52 Year
  Sex: Male
  Weight: 100 kg

DRUGS (13)
  1. LISINOPRIL [Suspect]
     Indication: HYPERTENSION
     Route: 048
  2. LISINOPRIL [Suspect]
     Indication: PROPHYLAXIS
     Route: 048
  3. SAXAGLIPTIN [Suspect]
     Indication: DIABETES MELLITUS
     Route: 048
  4. INSULIN ASPART [Concomitant]
  5. METOPROLOL TARTRATE [Concomitant]
  6. HYDRALAZINE [Concomitant]
  7. TRAZODONE [Concomitant]
  8. AMITRIPTYLINE [Concomitant]
  9. RANITIDINE [Concomitant]
  10. GABAPENTIN [Concomitant]
  11. METFORMIN [Concomitant]
  12. GEMFIBROZIL [Concomitant]
  13. INSULIN GLARGINE [Concomitant]

REACTIONS (1)
  - Angioedema [None]
